FAERS Safety Report 6805111-9 (Version None)
Quarter: 2010Q2

REPORT INFORMATION
  Report Type: 
  Country: None (occurrence: None)
  Receive Date: 20100628
  Receipt Date: 20070815
  Transmission Date: 20101027
  Serious: Yes (Other)
  Sender: FDA-Public Use
  Company Number: US-PFIZER INC-2007060657

PATIENT
  Sex: Female
  Weight: 74.8 kg

DRUGS (3)
  1. RELPAX [Suspect]
     Indication: MIGRAINE
     Dates: start: 20070714
  2. ZONEGRAN [Concomitant]
  3. TOPROL-XL [Concomitant]

REACTIONS (4)
  - CHEST PAIN [None]
  - MUSCLE TIGHTNESS [None]
  - NECK INJURY [None]
  - PALPITATIONS [None]
